FAERS Safety Report 4632822-6 (Version None)
Quarter: 2005Q2

REPORT INFORMATION
  Report Type: 
  Country: None (occurrence: None)
  Receive Date: 20050412
  Receipt Date: 20050405
  Transmission Date: 20051028
  Serious: Yes (Hospitalization)
  Sender: FDA-Public Use
  Company Number: US-BRISTOL-MYERS SQUIBB COMPANY-12922217

PATIENT
  Age: 43 Year
  Sex: Female
  Weight: 150 kg

DRUGS (10)
  1. TEQUIN [Suspect]
     Indication: COUGH
     Dates: start: 20050201
  2. FERRLECIT [Suspect]
     Indication: HAEMOGLOBIN DECREASED
     Route: 042
     Dates: start: 20050222, end: 20050225
  3. LONITEN [Concomitant]
     Dates: start: 20050219, end: 20050225
  4. BUMEX [Concomitant]
     Dates: start: 20050224
  5. ADALAT [Concomitant]
     Dates: start: 20050201
  6. INSULIN [Concomitant]
     Dates: start: 20050201
  7. COREG [Concomitant]
     Dates: start: 20050201
  8. HYDRALAZINE [Concomitant]
     Dates: start: 20050219, end: 20050303
  9. FOLTX [Concomitant]
     Dates: start: 20050201
  10. FERROUS SULFATE TAB [Concomitant]
     Indication: ANAEMIA
     Dates: end: 20050215

REACTIONS (4)
  - HAEMOLYTIC URAEMIC SYNDROME [None]
  - HYPERTENSION [None]
  - URTICARIA [None]
  - VOMITING [None]
